FAERS Safety Report 10598297 (Version 2)
Quarter: 2014Q4

REPORT INFORMATION
  Report Type: Spontaneous
  Country: CA (occurrence: None)
  Receive Date: 20141119
  Receipt Date: 20141202
  Transmission Date: 20150529
  Serious: Yes (Hospitalization)
  Sender: FDA-Public Use
  Company Number: CA2014GSK017840

PATIENT
  Age: 20 Year
  Sex: Male

DRUGS (4)
  1. TEMAZEPAM (TEMAZEPAM) [Suspect]
     Active Substance: TEMAZEPAM
     Indication: BIPOLAR DISORDER
  2. PAXIL [Suspect]
     Active Substance: PAROXETINE HYDROCHLORIDE
     Indication: BIPOLAR I DISORDER
  3. QUETIAPINE (QUETIAPINE) [Suspect]
     Active Substance: QUETIAPINE
     Indication: PRODUCT USED FOR UNKNOWN INDICATION
  4. ATIVAN [Concomitant]
     Active Substance: LORAZEPAM

REACTIONS (18)
  - Psychotic disorder [None]
  - Fear [None]
  - Hallucination, auditory [None]
  - Sexually transmitted disease [None]
  - Weight decreased [None]
  - Schizophrenia, paranoid type [None]
  - Weight abnormal [None]
  - Increased appetite [None]
  - Underweight [None]
  - Sleep disorder [None]
  - Homicide [None]
  - Hair transplant [None]
  - Fatigue [None]
  - Trichotillomania [None]
  - Erectile dysfunction [None]
  - Anxiety [None]
  - Depression [None]
  - Weight increased [None]

NARRATIVE: CASE EVENT DATE: 2004
